FAERS Safety Report 18663384 (Version 1)
Quarter: 2020Q4

REPORT INFORMATION
  Report Type: Spontaneous
  Country: DE (occurrence: TW)
  Receive Date: 20201224
  Receipt Date: 20201224
  Transmission Date: 20210114
  Serious: Yes (Other)
  Sender: FDA-Public Use
  Company Number: TW-ELI_LILLY_AND_COMPANY-TW202012011907

PATIENT
  Age: 69 Year
  Sex: Female
  Weight: 47 kg

DRUGS (5)
  1. DEXAMETHASONE. [Concomitant]
     Active Substance: DEXAMETHASONE
     Indication: PRODUCT USED FOR UNKNOWN INDICATION
     Dosage: (4MG/1ML/AMP) 1 AMP STAT IVP
  2. CHIAOWELGEN [Concomitant]
     Indication: PRODUCT USED FOR UNKNOWN INDICATION
     Dosage: 10 MG, UNK
  3. OTRIL [Concomitant]
     Indication: PRODUCT USED FOR UNKNOWN INDICATION
     Dosage: (3MG /3ML/VIAL) 1 VIAL ALONG WITH 0.9 PERCENT 100ML NORMAL SALINE (100ML/BAG) 1 BAG INTRAVENOUS DRIP
     Route: 041
  4. ERBITUX [Suspect]
     Active Substance: CETUXIMAB
     Indication: COLON CANCER
     Dosage: UNK UNK, UNKNOWN
     Route: 041
  5. OXALIPLATIN. [Concomitant]
     Active Substance: OXALIPLATIN
     Indication: COLON CANCER
     Dosage: (50MG/10ML/VIAL) 2 VIAL ALONG WITH 5 PERCENT 500ML GLUCOSE (500ML/BOT) 0.5 BAG AT 135CC PER HOUR.
     Route: 041

REACTIONS (1)
  - Hypotension [Unknown]
